FAERS Safety Report 14386061 (Version 1)
Quarter: 2018Q1

REPORT INFORMATION
  Report Type: Spontaneous
  Country: FR (occurrence: FR)
  Receive Date: 20180115
  Receipt Date: 20180115
  Transmission Date: 20180509
  Serious: Yes (Other)
  Sender: FDA-Public Use
  Company Number: FR-GILEAD-2017-0300063

PATIENT
  Age: 74 Year
  Sex: Female
  Weight: 55 kg

DRUGS (5)
  1. EPCLUSA [Suspect]
     Active Substance: SOFOSBUVIR\VELPATASVIR
     Dosage: UNK
     Route: 048
  2. IDEOS [Suspect]
     Active Substance: CALCIUM CARBONATE\CHOLECALCIFEROL
     Indication: OSTEOPOROSIS
     Route: 048
     Dates: start: 201706
  3. EPCLUSA [Suspect]
     Active Substance: SOFOSBUVIR\VELPATASVIR
     Indication: CHRONIC HEPATITIS C
     Dosage: UNK
     Route: 048
     Dates: start: 20170928, end: 20171012
  4. UVEDOSE [Concomitant]
     Active Substance: CHOLECALCIFEROL
     Indication: OSTEOPOROSIS
     Route: 048
  5. ACTONEL [Suspect]
     Active Substance: RISEDRONATE SODIUM
     Indication: OSTEOPOROSIS
     Dosage: 35 MG, Q1WK
     Route: 048
     Dates: start: 20170731

REACTIONS (9)
  - Glossitis [Not Recovered/Not Resolved]
  - Sjogren^s syndrome [Not Recovered/Not Resolved]
  - Choking sensation [Unknown]
  - Sleep disorder [Unknown]
  - Oral fungal infection [Recovered/Resolved]
  - Anal fungal infection [Recovering/Resolving]
  - Dry mouth [Not Recovered/Not Resolved]
  - Anxiety [Unknown]
  - Vulvovaginal mycotic infection [Recovering/Resolving]

NARRATIVE: CASE EVENT DATE: 2017
